FAERS Safety Report 19725799 (Version 1)
Quarter: 2021Q3

REPORT INFORMATION
  Report Type: Spontaneous
  Country: US (occurrence: US)
  Receive Date: 20210819
  Receipt Date: 20210819
  Transmission Date: 20211014
  Serious: No
  Sender: FDA-Public Use
  Company Number: US-MANNKIND CORPORATION-2020MK000067

PATIENT

DRUGS (2)
  1. STEROIDS [Concomitant]
     Active Substance: UNSPECIFIED INGREDIENT
     Indication: BLOOD GLUCOSE ABNORMAL
  2. AFREZZA [Suspect]
     Active Substance: INSULIN HUMAN
     Indication: BLOOD GLUCOSE ABNORMAL

REACTIONS (2)
  - COVID-19 [Not Recovered/Not Resolved]
  - Blood glucose abnormal [Not Recovered/Not Resolved]
